FAERS Safety Report 11331326 (Version 1)
Quarter: 2015Q3

REPORT INFORMATION
  Report Type: Spontaneous
  Country: CZ (occurrence: CZ)
  Receive Date: 20150803
  Receipt Date: 20150803
  Transmission Date: 20151125
  Serious: Yes (Other)
  Sender: FDA-Public Use
  Company Number: PHHY2015CZ090696

PATIENT
  Age: 85 Year
  Sex: Male

DRUGS (8)
  1. ENOXAPARIN [Suspect]
     Active Substance: ENOXAPARIN
     Indication: HAEMODIALYSIS
     Dosage: 6 ML, UNK
     Route: 065
  2. SOLU-MEDROL [Concomitant]
     Active Substance: METHYLPREDNISOLONE SODIUM SUCCINATE
     Indication: HAEMODIALYSIS
     Route: 065
  3. ENOXAPARIN [Suspect]
     Active Substance: ENOXAPARIN
     Dosage: 0.4 UNK, UNK
  4. CALCIUM                            /00241701/ [Concomitant]
     Indication: HAEMODIALYSIS
     Route: 065
  5. SODIUM CHLORIDE. [Concomitant]
     Active Substance: SODIUM CHLORIDE
     Indication: HAEMODIALYSIS
     Dosage: 3000 ML, UNK
     Route: 042
  6. HYDROCORTISONE. [Concomitant]
     Active Substance: HYDROCORTISONE
     Indication: HAEMODIALYSIS
  7. ENOXAPARIN [Suspect]
     Active Substance: ENOXAPARIN
     Indication: ANURIA
     Dosage: 0.4 ML, UNK
     Route: 065
  8. DITHIADEN [Concomitant]
     Active Substance: BISULEPIN
     Indication: HAEMODIALYSIS
     Route: 065

REACTIONS (6)
  - Tachypnoea [Unknown]
  - Hypersensitivity [Unknown]
  - Fluid overload [Unknown]
  - Dyspnoea [Unknown]
  - Hypertension [Unknown]
  - Thrombocytopenia [Unknown]
